FAERS Safety Report 10308472 (Version 2)
Quarter: 2014Q3

REPORT INFORMATION
  Report Type: Spontaneous
  Country: US (occurrence: US)
  Receive Date: 20140716
  Receipt Date: 20140716
  Transmission Date: 20150326
  Serious: No
  Sender: FDA-Public Use
  Company Number: US-BAUSCH-BL-2014-001851

PATIENT
  Sex: Female
  Weight: 64.92 kg

DRUGS (6)
  1. LOTEMAX [Suspect]
     Active Substance: LOTEPREDNOL ETABONATE
     Indication: PREOPERATIVE CARE
     Dosage: 1 DROP, 4 TIMES A DAY
     Route: 047
     Dates: start: 201308
  2. LOTEMAX [Suspect]
     Active Substance: LOTEPREDNOL ETABONATE
     Dosage: 1 DROP, TWICE A DAY
     Route: 047
     Dates: start: 20140331, end: 20140401
  3. FLECAINIDE [Concomitant]
     Active Substance: FLECAINIDE
     Indication: PRODUCT USED FOR UNKNOWN INDICATION
  4. ATENOLOL. [Concomitant]
     Active Substance: ATENOLOL
     Indication: PRODUCT USED FOR UNKNOWN INDICATION
  5. LOTEMAX [Suspect]
     Active Substance: LOTEPREDNOL ETABONATE
     Indication: POSTOPERATIVE CARE
     Dosage: TWICE A DAY OR THREE TIMES A DAY
     Route: 047
     Dates: start: 201306
  6. KETOROLAC [Concomitant]
     Active Substance: KETOROLAC\KETOROLAC TROMETHAMINE
     Indication: PRODUCT USED FOR UNKNOWN INDICATION

REACTIONS (5)
  - Eye inflammation [Recovering/Resolving]
  - Reaction to preservatives [Recovering/Resolving]
  - Eye irritation [Recovering/Resolving]
  - Vision blurred [Recovering/Resolving]
  - Ocular hyperaemia [Recovering/Resolving]

NARRATIVE: CASE EVENT DATE: 2013
